FAERS Safety Report 6290659-9 (Version None)
Quarter: 2009Q3

REPORT INFORMATION
  Report Type: 
  Country: None (occurrence: None)
  Receive Date: 20090728
  Receipt Date: 20090728
  Transmission Date: 20100115
  Serious: No
  Sender: FDA-Public Use
  Company Number: None

PATIENT
  Sex: Male
  Weight: 99.7913 kg

DRUGS (1)
  1. LEVAQUIN [Suspect]
     Indication: PROSTATE INFECTION
     Dosage: 1 TABLET DAILY PO
     Route: 048
     Dates: start: 20090717, end: 20090719

REACTIONS (10)
  - ABNORMAL SENSATION IN EYE [None]
  - AGITATION [None]
  - ARTHRALGIA [None]
  - HEADACHE [None]
  - HYPERHIDROSIS [None]
  - INFLAMMATION [None]
  - INSOMNIA [None]
  - NERVOUSNESS [None]
  - PALPITATIONS [None]
  - TREMOR [None]
